FAERS Safety Report 4483383-6 (Version None)
Quarter: 2004Q4

REPORT INFORMATION
  Report Type: 
  Country: None (occurrence: None)
  Receive Date: 20041020
  Receipt Date: 20041005
  Transmission Date: 20050328
  Serious: Yes (Other)
  Sender: FDA-Public Use
  Company Number: 2004-UK-00986UK

PATIENT
  Age: 69 Year
  Sex: Male

DRUGS (5)
  1. MICARDIS HCT [Suspect]
     Indication: HYPERTENSION
     Dosage: 60/12.5 MG DAILY (SEE TEXT)  PO; 40/12.5 DAILY (SEE TEXT) PO
     Route: 048
     Dates: start: 20040712, end: 20040805
  2. MICARDIS HCT [Suspect]
     Indication: HYPERTENSION
     Dosage: 60/12.5 MG DAILY (SEE TEXT)  PO; 40/12.5 DAILY (SEE TEXT) PO
     Route: 048
     Dates: start: 20040806, end: 20040907
  3. ASPIRIN [Concomitant]
  4. ATENOLOL [Concomitant]
  5. LOSARTAN (LOSARTAN) [Concomitant]

REACTIONS (1)
  - PHOTOSENSITIVE RASH [None]
